FAERS Safety Report 5093153-6 (Version None)
Quarter: 2006Q3

REPORT INFORMATION
  Report Type: 
  Country: None (occurrence: None)
  Receive Date: 20060830
  Receipt Date: 20060817
  Transmission Date: 20061208
  Serious: Yes (Other)
  Sender: FDA-Public Use
  Company Number: GB-ROCHE-460997

PATIENT
  Age: 33 Year
  Sex: Male

DRUGS (5)
  1. MYCOPHENOLATE MOFETIL [Suspect]
     Indication: DRUG USE FOR UNKNOWN INDICATION
     Route: 065
  2. NEORAL [Concomitant]
     Indication: RENAL TRANSPLANT
     Route: 065
     Dates: start: 20041001
  3. FUROSEMIDE [Concomitant]
  4. LISINOPRIL [Concomitant]
  5. PREDNISOLONE [Concomitant]

REACTIONS (1)
  - INFERTILITY [None]
